FAERS Safety Report 6342248-5 (Version None)
Quarter: 2009Q3

REPORT INFORMATION
  Report Type: 
  Country: None (occurrence: None)
  Receive Date: 20090903
  Receipt Date: 20090903
  Transmission Date: 20100115
  Serious: No
  Sender: FDA-Public Use
  Company Number: None

PATIENT
  Age: 52 Year
  Sex: Male

DRUGS (1)
  1. VALPROIC ACID [Suspect]
     Dosage: PO
     Route: 048
     Dates: end: 20090718

REACTIONS (7)
  - ENTERITIS [None]
  - HEPATIC STEATOSIS [None]
  - HEPATITIS [None]
  - PANCREATITIS RELAPSING [None]
  - REFLUX OESOPHAGITIS [None]
  - SHIFT TO THE LEFT [None]
  - WHITE BLOOD CELL COUNT INCREASED [None]
